FAERS Safety Report 10236726 (Version 6)
Quarter: 2016Q2

REPORT INFORMATION
  Report Type: Spontaneous
  Country: US (occurrence: US)
  Receive Date: 20140613
  Receipt Date: 20160404
  Transmission Date: 20160815
  Serious: Yes (Hospitalization)
  Sender: FDA-Public Use
  Company Number: US-009507513-1406USA006228

PATIENT
  Sex: Male
  Weight: 104.31 kg

DRUGS (3)
  1. PROPECIA [Suspect]
     Active Substance: FINASTERIDE
     Dosage: 1 MG, QD
     Route: 048
     Dates: start: 20100211, end: 201204
  2. PROPECIA [Suspect]
     Active Substance: FINASTERIDE
     Dosage: 1 MG, UNK
     Route: 048
     Dates: start: 20080209
  3. PROPECIA [Suspect]
     Active Substance: FINASTERIDE
     Indication: ALOPECIA
     Dosage: 1 MG, QD
     Route: 048
     Dates: start: 20050127, end: 20051228

REACTIONS (18)
  - Skin lesion [Unknown]
  - Libido decreased [Unknown]
  - Dyspnoea [Unknown]
  - Intraocular pressure test [Unknown]
  - Tachycardia [Unknown]
  - Gastrooesophageal reflux disease [Unknown]
  - Erectile dysfunction [Not Recovered/Not Resolved]
  - Sexual dysfunction [Unknown]
  - Osteoarthritis [Unknown]
  - Intervertebral disc disorder [Unknown]
  - Erectile dysfunction [Unknown]
  - Calculus urinary [Unknown]
  - Nephrolithiasis [Unknown]
  - Headache [Unknown]
  - Chronic obstructive pulmonary disease [Not Recovered/Not Resolved]
  - Gynaecomastia [Unknown]
  - Vertigo positional [Unknown]
  - Sexual dysfunction [Not Recovered/Not Resolved]

NARRATIVE: CASE EVENT DATE: 2005
